FAERS Safety Report 4558257-2 (Version None)
Quarter: 2005Q1

REPORT INFORMATION
  Report Type: 
  Country: None (occurrence: None)
  Receive Date: 20050121
  Receipt Date: 20030324
  Transmission Date: 20050727
  Serious: Yes (Hospitalization, Other)
  Sender: FDA-Public Use
  Company Number: US-BRISTOL-MYERS SQUIBB COMPANY-12206017

PATIENT
  Age: 66 Year
  Sex: Female
  Weight: 72 kg

DRUGS (6)
  1. CISPLATIN [Suspect]
     Indication: TONGUE NEOPLASM MALIGNANT STAGE UNSPECIFIED
     Dosage: LAST DOSE: 22MAY01
     Route: 042
     Dates: start: 20000919, end: 20000919
  2. CETUXIMAB [Suspect]
     Indication: TONGUE NEOPLASM MALIGNANT STAGE UNSPECIFIED
     Dosage: CONTINUED AT 250 MG/M2
     Route: 042
     Dates: start: 20000919, end: 20000919
  3. ZOFRAN [Concomitant]
  4. FENTANYL [Concomitant]
  5. TYLENOL W/ CODEINE NO. 3 [Concomitant]
  6. ANTIHYPERTENSIVE [Concomitant]

REACTIONS (4)
  - ASTHENIA [None]
  - DEHYDRATION [None]
  - FALL [None]
  - WEIGHT DECREASED [None]
